FAERS Safety Report 5620286-5 (Version None)
Quarter: 2008Q1

REPORT INFORMATION
  Report Type: 
  Country: None (occurrence: None)
  Receive Date: 20080208
  Receipt Date: 20080207
  Transmission Date: 20080703
  Serious: Yes (Other)
  Sender: FDA-Public Use
  Company Number: A0707936A

PATIENT
  Sex: Female

DRUGS (1)
  1. COMMIT [Suspect]
     Indication: SMOKING CESSATION THERAPY
     Route: 002

REACTIONS (3)
  - DEPENDENCE [None]
  - INTENTIONAL DRUG MISUSE [None]
  - NICOTINE DEPENDENCE [None]
